FAERS Safety Report 4693188-9 (Version None)
Quarter: 2005Q2

REPORT INFORMATION
  Report Type: 
  Country: None (occurrence: None)
  Receive Date: 20050617
  Receipt Date: 20040102
  Transmission Date: 20051028
  Serious: Yes (Hospitalization)
  Sender: FDA-Public Use
  Company Number: US-SANOFI-SYNTHELABO-F01200400005

PATIENT
  Sex: Female
  Weight: 74.1 kg

DRUGS (8)
  1. OXALIPLATIN [Suspect]
     Route: 042
     Dates: start: 20031218, end: 20031218
  2. FLUOROURACIL [Suspect]
     Dosage: 500 MG/M2 BOLUS ON D1, D8 AND D15, Q4W
     Route: 040
     Dates: start: 20031218, end: 20031218
  3. LEUCOVORIN CALCIUM [Suspect]
     Dosage: 20 MG/M2 ON D1, D8 AND D15, Q4W
     Route: 040
     Dates: start: 20031218, end: 20031218
  4. AVASTIN [Suspect]
     Dosage: 5 MG/KG (D1 AND D15-Q4W) OVER 30-90 MINUTES IV INFUSION
     Route: 042
     Dates: start: 20031218, end: 20031218
  5. KYTRIL [Concomitant]
     Dosage: UNKNOWN
     Route: 065
  6. CIPRO [Concomitant]
  7. ZOFRAN [Concomitant]
     Dosage: 8 MG
     Route: 065
     Dates: start: 20031222, end: 20031226
  8. NORMAL SALINE [Concomitant]
     Dosage: 500 ML
     Route: 042
     Dates: start: 20031223, end: 20031223

REACTIONS (12)
  - ABDOMINAL PAIN [None]
  - BLOOD CREATININE INCREASED [None]
  - DEHYDRATION [None]
  - DIARRHOEA [None]
  - FLATULENCE [None]
  - GASTROENTERITIS [None]
  - HYPONATRAEMIA [None]
  - HYPOTENSION [None]
  - NAUSEA [None]
  - SUPRAVENTRICULAR TACHYCARDIA [None]
  - SYNCOPE [None]
  - VOMITING [None]
